FAERS Safety Report 11289335 (Version 1)
Quarter: 2015Q3

REPORT INFORMATION
  Report Type: Report from Study
  Country: KE (occurrence: KE)
  Receive Date: 20150721
  Receipt Date: 20150721
  Transmission Date: 20151125
  Serious: Yes (Other)
  Sender: FDA-Public Use
  Company Number: KE-MYLANLABS-2015M1024137

PATIENT

DRUGS (1)
  1. LAMIVUDINE/NEVIRAPINE/ZIDOVUDINE [Suspect]
     Active Substance: LAMIVUDINE\NEVIRAPINE\ZIDOVUDINE
     Indication: HIV INFECTION
     Dosage: UNK
     Dates: start: 20140626

REACTIONS (2)
  - Abortion spontaneous [Recovered/Resolved]
  - Exposure during pregnancy [Recovered/Resolved]

NARRATIVE: CASE EVENT DATE: 20140821
